FAERS Safety Report 7309057-1 (Version None)
Quarter: 2011Q1

REPORT INFORMATION
  Report Type: 
  Country: None (occurrence: None)
  Receive Date: 20110223
  Receipt Date: 20110219
  Transmission Date: 20110831
  Serious: Yes (Other)
  Sender: FDA-Public Use
  Company Number: US-PFIZER INC-2011036822

PATIENT
  Sex: Female
  Weight: 58.96 kg

DRUGS (6)
  1. INSULIN [Concomitant]
     Indication: TYPE 1 DIABETES MELLITUS
     Dosage: UNK
  2. CHANTIX [Suspect]
     Dosage: UNK
     Route: 048
     Dates: end: 20110219
  3. ALTACE [Concomitant]
     Indication: MOOD SWINGS
     Dosage: 0.2 MG, 1X/DAY
  4. ALTACE [Concomitant]
     Indication: PROPHYLAXIS
  5. CHANTIX [Suspect]
     Indication: SMOKING CESSATION THERAPY
     Dosage: 0.5 MG, 1X/DAY
     Route: 048
     Dates: start: 20110208
  6. SYNTHROID [Concomitant]
     Indication: THYROID DISORDER
     Dosage: 150 UG, 1X/DAY

REACTIONS (1)
  - BLOOD GLUCOSE INCREASED [None]
